FAERS Safety Report 4860186-1 (Version None)
Quarter: 2005Q4

REPORT INFORMATION
  Report Type: 
  Country: None (occurrence: None)
  Receive Date: 20051214
  Receipt Date: 20051202
  Transmission Date: 20060501
  Serious: Yes (Hospitalization, Other)
  Sender: FDA-Public Use
  Company Number: KII-2005-0020139

PATIENT
  Age: 21 Year
  Sex: Male

DRUGS (3)
  1. OXYCONTIN [Suspect]
     Dosage: UNK, SEE TEXT, ORAL
     Route: 048
  2. BENZODIAZEPINE DERIVATIVES () [Suspect]
     Dosage: UNK
  3. COCAINE (COCAINE) [Suspect]
     Indication: INTENTIONAL DRUG MISUSE
     Dosage: UNK

REACTIONS (6)
  - AGITATION [None]
  - COMA [None]
  - DRUG ABUSER [None]
  - MULTIPLE DRUG OVERDOSE [None]
  - ROAD TRAFFIC ACCIDENT [None]
  - SLUGGISHNESS [None]
